FAERS Safety Report 5080381-9 (Version None)
Quarter: 2006Q3

REPORT INFORMATION
  Report Type: 
  Country: None (occurrence: None)
  Receive Date: 20060815
  Receipt Date: 20060726
  Transmission Date: 20061208
  Serious: Yes (Hospitalization)
  Sender: FDA-Public Use
  Company Number: US-ROCHE-457231

PATIENT
  Age: 65 Year
  Sex: Female

DRUGS (14)
  1. CAPECITABINE [Suspect]
     Indication: COLON CANCER
     Route: 048
     Dates: start: 20051118, end: 20060614
  2. CAPECITABINE [Suspect]
     Route: 048
  3. CELECOXIB [Suspect]
     Indication: COLON CANCER
     Route: 048
     Dates: start: 20051111
  4. IRINOTECAN HCL [Suspect]
     Indication: COLON CANCER
     Route: 042
     Dates: start: 20051118
  5. DURAGESIC-100 [Concomitant]
     Indication: PAIN
  6. ACETAMINOPHEN [Concomitant]
  7. MARINOL [Concomitant]
     Indication: NAUSEA
     Dosage: EVERY HOUR AS NEEDED
  8. GRANISETRON  HCL [Concomitant]
     Dosage: TWICE DAILY AS NEEDED
     Route: 048
  9. ZOFRAN [Concomitant]
     Indication: NAUSEA
     Dosage: THREE TIMES DAILY AS NEEDED
  10. MULTI-VITAMIN [Concomitant]
  11. PROTONIX [Concomitant]
     Dosage: TAKEN DAILY
  12. VITAMIN B-12 [Concomitant]
  13. XANAX [Concomitant]
  14. IMODIUM [Concomitant]
     Dosage: AS NEEDED PER INSTRUCTIONS

REACTIONS (7)
  - ABDOMINAL PAIN [None]
  - ILEUS [None]
  - INTESTINAL OBSTRUCTION [None]
  - NAUSEA [None]
  - PAIN [None]
  - SMALL INTESTINAL OBSTRUCTION [None]
  - VOMITING [None]
